FAERS Safety Report 6891002-4 (Version None)
Quarter: 2010Q3

REPORT INFORMATION
  Report Type: 
  Country: None (occurrence: None)
  Receive Date: 20100731
  Receipt Date: 20090504
  Transmission Date: 20110219
  Serious: No
  Sender: FDA-Public Use
  Company Number: US-PFIZER INC-2009208066

PATIENT
  Sex: Male
  Weight: 88.435 kg

DRUGS (4)
  1. LIPITOR [Suspect]
     Indication: BLOOD CHOLESTEROL
     Dosage: UNK
  2. ZETIA [Concomitant]
     Dosage: UNK
  3. HYDROXYZINE [Concomitant]
     Dosage: UNK
  4. ACETYLSALICYLIC ACID [Concomitant]
     Dosage: UNK

REACTIONS (4)
  - BACK DISORDER [None]
  - CHROMATURIA [None]
  - MYALGIA [None]
  - PARAESTHESIA [None]
